FAERS Safety Report 9513175 (Version 2)
Quarter: 2013Q4

REPORT INFORMATION
  Report Type: Spontaneous
  Country: US (occurrence: US)
  Receive Date: 20130910
  Receipt Date: 20131106
  Transmission Date: 20140711
  Serious: No
  Sender: FDA-Public Use
  Company Number: US-PFIZER INC-2013258504

PATIENT
  Age: 73 Year
  Sex: Female
  Weight: 65.76 kg

DRUGS (2)
  1. AMLODIPINE BESILATE [Suspect]
     Indication: HYPERTENSION
     Dosage: 10 MG, 1X/DAY
     Dates: start: 201307, end: 20130831
  2. LISINOPRIL [Concomitant]
     Dosage: UNK

REACTIONS (1)
  - Rash [Not Recovered/Not Resolved]
